FAERS Safety Report 7628373-7 (Version None)
Quarter: 2011Q3

REPORT INFORMATION
  Report Type: 
  Country: None (occurrence: None)
  Receive Date: 20110722
  Receipt Date: 20110712
  Transmission Date: 20111222
  Serious: Yes (Hospitalization, Other)
  Sender: FDA-Public Use
  Company Number: US-JNJFOC-20110706566

PATIENT
  Age: 52 Year
  Sex: Female

DRUGS (100)
  1. ASPIRIN [Suspect]
     Route: 065
  2. ASPIRIN [Suspect]
     Route: 065
  3. ASPIRIN [Suspect]
     Route: 065
  4. ASPIRIN [Suspect]
     Route: 065
  5. ASPIRIN [Suspect]
     Route: 065
  6. ASPIRIN [Suspect]
     Route: 065
  7. ASPIRIN [Suspect]
     Route: 065
  8. ASPIRIN [Suspect]
     Route: 065
  9. ASPIRIN [Suspect]
     Route: 065
  10. ASPIRIN [Suspect]
     Route: 065
  11. ASPIRIN [Suspect]
     Route: 065
  12. ASPIRIN [Suspect]
     Route: 065
  13. ASPIRIN [Suspect]
     Route: 065
  14. ASPIRIN [Suspect]
     Route: 065
  15. ASPIRIN [Suspect]
     Route: 065
  16. ASPIRIN [Suspect]
     Route: 065
  17. ASPIRIN [Suspect]
     Route: 065
  18. ASPIRIN [Suspect]
     Route: 065
  19. ASPIRIN [Suspect]
     Route: 065
  20. ASPIRIN [Suspect]
     Route: 065
  21. ASPIRIN [Suspect]
     Route: 065
  22. ASPIRIN [Suspect]
     Route: 065
  23. ASPIRIN [Suspect]
     Route: 065
  24. ASPIRIN [Suspect]
     Route: 065
  25. ASPIRIN [Suspect]
     Route: 065
  26. ASPIRIN [Suspect]
     Route: 065
  27. ASPIRIN [Suspect]
     Route: 065
  28. ASPIRIN [Suspect]
     Route: 065
  29. ASPIRIN [Suspect]
     Route: 065
  30. ASPIRIN [Suspect]
     Route: 065
  31. ASPIRIN [Suspect]
     Route: 065
  32. ASPIRIN [Suspect]
     Route: 065
  33. ASPIRIN [Suspect]
     Route: 065
  34. ASPIRIN [Suspect]
     Route: 065
  35. ASPIRIN [Suspect]
     Route: 065
  36. ASPIRIN [Suspect]
     Route: 065
  37. ASPIRIN [Suspect]
     Route: 065
  38. ASPIRIN [Suspect]
     Route: 065
  39. ASPIRIN [Suspect]
     Route: 065
  40. ASPIRIN [Suspect]
     Route: 065
  41. ASPIRIN [Suspect]
     Route: 065
  42. ASPIRIN [Suspect]
     Route: 065
  43. ASPIRIN [Suspect]
     Route: 065
  44. ASPIRIN [Suspect]
     Route: 065
  45. ASPIRIN [Suspect]
     Route: 065
  46. ASPIRIN [Suspect]
     Route: 065
  47. ASPIRIN [Suspect]
     Route: 065
  48. ASPIRIN [Suspect]
     Route: 065
  49. ASPIRIN [Suspect]
     Route: 065
  50. ASPIRIN [Suspect]
     Route: 065
  51. ASPIRIN [Suspect]
     Route: 065
  52. ASPIRIN [Suspect]
     Route: 065
  53. ASPIRIN [Suspect]
     Route: 065
  54. ASPIRIN [Suspect]
     Route: 065
  55. ASPIRIN [Suspect]
     Route: 065
  56. ASPIRIN [Suspect]
     Route: 065
  57. ASPIRIN [Suspect]
     Route: 065
  58. ASPIRIN [Suspect]
     Route: 065
  59. ASPIRIN [Suspect]
     Route: 065
  60. ASPIRIN [Suspect]
     Route: 065
  61. ASPIRIN [Suspect]
     Route: 065
  62. ASPIRIN [Suspect]
     Route: 065
  63. ASPIRIN [Suspect]
     Route: 065
  64. ASPIRIN [Suspect]
     Route: 065
  65. ASPIRIN [Suspect]
     Route: 065
  66. ASPIRIN [Suspect]
     Route: 065
  67. ASPIRIN [Suspect]
     Route: 065
  68. ASPIRIN [Suspect]
     Route: 065
  69. ASPIRIN [Suspect]
     Route: 065
  70. ASPIRIN [Suspect]
     Route: 065
  71. ASPIRIN [Suspect]
     Indication: PRODUCT USED FOR UNKNOWN INDICATION
     Route: 065
  72. ASPIRIN [Suspect]
     Route: 065
  73. ASPIRIN [Suspect]
     Indication: IMMUNE TOLERANCE INDUCTION
     Route: 065
  74. ASPIRIN [Suspect]
     Route: 065
  75. ASPIRIN [Suspect]
     Route: 065
  76. ASPIRIN [Suspect]
     Route: 065
  77. ASPIRIN [Suspect]
     Route: 065
  78. ASPIRIN [Suspect]
     Route: 065
  79. ASPIRIN [Suspect]
     Route: 065
  80. ASPIRIN [Suspect]
     Route: 065
  81. ASPIRIN [Suspect]
     Route: 065
  82. ASPIRIN [Suspect]
     Route: 065
  83. ASPIRIN [Suspect]
     Route: 065
  84. ASPIRIN [Suspect]
     Route: 065
  85. ASPIRIN [Suspect]
     Route: 065
  86. ASPIRIN [Suspect]
     Route: 065
  87. ASPIRIN [Suspect]
     Route: 065
  88. ASPIRIN [Suspect]
     Route: 065
  89. ASPIRIN [Suspect]
     Route: 065
  90. ASPIRIN [Suspect]
     Route: 065
  91. ASPIRIN [Suspect]
     Route: 065
  92. ASPIRIN [Suspect]
     Route: 065
  93. ASPIRIN [Suspect]
     Route: 065
  94. ASPIRIN [Suspect]
     Route: 065
  95. ASPIRIN [Suspect]
     Route: 065
  96. ASPIRIN [Suspect]
     Route: 065
  97. ASPIRIN [Suspect]
     Route: 065
  98. ASPIRIN [Suspect]
     Route: 065
  99. ASPIRIN [Suspect]
     Route: 065
  100. ASPIRIN [Suspect]
     Route: 065

REACTIONS (3)
  - URTICARIA [None]
  - SWOLLEN TONGUE [None]
  - HYPOTENSION [None]
